FAERS Safety Report 10151074 (Version 1)
Quarter: 2014Q2

REPORT INFORMATION
  Report Type: Spontaneous
  Country: DK (occurrence: FR)
  Receive Date: 20140502
  Receipt Date: 20140502
  Transmission Date: 20141212
  Serious: Yes (Death)
  Sender: FDA-Public Use
  Company Number: FR-FRI-1000067037

PATIENT
  Age: 79 Year
  Sex: Male

DRUGS (10)
  1. ESCITALOPRAM [Suspect]
     Dosage: 1 DF
     Route: 048
  2. PREVISCAN [Suspect]
     Indication: CARDIOVASCULAR EVENT PROPHYLAXIS
     Dosage: 15 MG
     Route: 048
  3. PREVISCAN [Suspect]
     Dosage: 10 MG
     Route: 048
     Dates: start: 20140222
  4. KARDEGIC [Suspect]
     Indication: CARDIOVASCULAR EVENT PROPHYLAXIS
     Dosage: 1 DF
     Route: 048
  5. CORDARONE [Concomitant]
     Dosage: 200 MG
     Route: 048
  6. TAHOR [Concomitant]
     Dosage: 10 MG
     Route: 048
  7. STAGID [Concomitant]
     Dosage: 280 MG
     Route: 048
  8. DIAMICRON [Concomitant]
     Dosage: 60 MG
     Route: 048
  9. PARIET [Concomitant]
     Dosage: 20 MG
     Route: 048
  10. PERMIXON [Concomitant]
     Dosage: 160 MG
     Route: 048

REACTIONS (3)
  - Haematoma [Not Recovered/Not Resolved]
  - Coma [Fatal]
  - Haemorrhagic stroke [Fatal]
